FAERS Safety Report 8975551 (Version 2)
Quarter: 2012Q4

REPORT INFORMATION
  Report Type: 
  Country: BR (occurrence: BR)
  Receive Date: 20121219
  Receipt Date: 20121221
  Transmission Date: 20130627
  Serious: Yes (Other)
  Sender: FDA-Public Use
  Company Number: BR-PFIZER INC-2012319708

PATIENT
  Age: 77 Year
  Sex: Male
  Weight: 78 kg

DRUGS (10)
  1. CARDURAN NEO [Suspect]
     Dosage: UNK
     Route: 048
  2. AMLODIPINE [Concomitant]
     Indication: HYPERTENSION
     Dosage: 2 tablets daily
     Dates: start: 201211
  3. CARDILOL [Concomitant]
     Indication: HYPERTENSION
     Dosage: 2 tablets, unspecified frequency
     Dates: start: 20121203
  4. CLOPIDOGREL [Concomitant]
     Indication: HYPERTENSION
     Dosage: 1 tablet daily
     Dates: start: 20121203
  5. ENAPRIL [Concomitant]
     Indication: HYPERTENSION
     Dosage: 2 tablets daily
     Dates: start: 201211
  6. INDAPEN [Concomitant]
     Indication: HYPERTENSION
     Dosage: 1 tablet daily
     Dates: start: 20121129
  7. AAS [Concomitant]
     Indication: ANTICOAGULANT THERAPY
     Dosage: 2 tablets of unspecified frequency
     Dates: start: 2009
  8. CEFACLOR [Concomitant]
     Indication: URETHRAL INFECTION
     Dosage: one tablet every 12 hoursfor 15 days
  9. SIMVASTATIN [Concomitant]
     Indication: CHOLESTEROL
     Dosage: 1 tablet daily
     Dates: start: 201211
  10. SUSTRATE [Concomitant]
     Indication: CHEST PAIN
     Dosage: two tablets daily
     Dates: start: 20121203

REACTIONS (2)
  - Prostatomegaly [Unknown]
  - Cardiac disorder [Unknown]
